FAERS Safety Report 19316038 (Version 2)
Quarter: 2021Q3

REPORT INFORMATION
  Report Type: Report from Study
  Country: FR (occurrence: FR)
  Receive Date: 20210527
  Receipt Date: 20210730
  Transmission Date: 20211014
  Serious: Yes (Other)
  Sender: FDA-Public Use
  Company Number: PHHY2018FR073363

PATIENT
  Age: 77 Year
  Sex: Female
  Weight: 84 kg

DRUGS (1)
  1. VOTRIENT [Suspect]
     Active Substance: PAZOPANIB HYDROCHLORIDE
     Indication: RENAL CANCER METASTATIC
     Dosage: 800 MG, QD
     Route: 048
     Dates: start: 20180327, end: 20200310

REACTIONS (6)
  - Hypertension [Recovered/Resolved]
  - Weight decreased [Unknown]
  - Asthenia [Unknown]
  - Hyperthyroidism [Unknown]
  - Thyroid adenoma [Unknown]
  - Dyspepsia [Unknown]

NARRATIVE: CASE EVENT DATE: 20180414
